FAERS Safety Report 5344900-7 (Version None)
Quarter: 2007Q2

REPORT INFORMATION
  Report Type: 
  Country: None (occurrence: None)
  Receive Date: 20070416
  Receipt Date: 20070118
  Transmission Date: 20071010
  Serious: No
  Sender: FDA-Public Use
  Company Number: 2007SP000240

PATIENT
  Age: 21 Year
  Sex: Male

DRUGS (3)
  1. LUNESTA [Suspect]
     Dosage: 3 MG ORAL
     Route: 048
  2. EFFEXOR [Concomitant]
  3. SEROQUEL [Concomitant]

REACTIONS (1)
  - FEAR [None]
